FAERS Safety Report 22232509 (Version 1)
Quarter: 2023Q2

REPORT INFORMATION
  Report Type: Spontaneous
  Country: US (occurrence: None)
  Receive Date: 20230420
  Receipt Date: 20230420
  Transmission Date: 20230721
  Serious: No
  Sender: FDA-Public Use
  Company Number: US-ROCHE-3051889

PATIENT
  Sex: Female

DRUGS (13)
  1. ESBRIET [Suspect]
     Active Substance: PIRFENIDONE
     Indication: Idiopathic pulmonary fibrosis
     Route: 048
     Dates: start: 202202
  2. ESBRIET [Suspect]
     Active Substance: PIRFENIDONE
     Indication: Chronic respiratory failure
  3. BUDESONIDE [Concomitant]
     Active Substance: BUDESONIDE
  4. LOSARTAN POTASSIUM [Concomitant]
     Active Substance: LOSARTAN POTASSIUM
  5. ALBUTEROL SULFATE [Concomitant]
     Active Substance: ALBUTEROL SULFATE
     Dosage: 2.5MG/0
     Route: 055
  6. COLACE [Concomitant]
     Active Substance: DOCUSATE SODIUM
  7. PANTOPRAZOLE [Concomitant]
     Active Substance: PANTOPRAZOLE
  8. ROSUVASTATIN [Concomitant]
     Active Substance: ROSUVASTATIN
  9. SELENIUM [Concomitant]
     Active Substance: SELENIUM
  10. TYLENOL EXTRA STRENGTH [Concomitant]
     Active Substance: ACETAMINOPHEN
  11. AZITHROMYCIN ANHYDROUS [Concomitant]
     Active Substance: AZITHROMYCIN ANHYDROUS
  12. HYDRALAZINE [Concomitant]
     Active Substance: HYDRALAZINE HYDROCHLORIDE
  13. HYDROCHLOROTHIAZIDE [Concomitant]
     Active Substance: HYDROCHLOROTHIAZIDE

REACTIONS (3)
  - Abdominal pain upper [Unknown]
  - Abdominal discomfort [Unknown]
  - Abdominal pain [Unknown]
